FAERS Safety Report 23616039 (Version 1)
Quarter: 2024Q1

REPORT INFORMATION
  Report Type: Spontaneous
  Country: CA (occurrence: CA)
  Receive Date: 20240311
  Receipt Date: 20240311
  Transmission Date: 20240410
  Serious: Yes (Hospitalization)
  Sender: FDA-Public Use
  Company Number: CA-SANDOZ-SDZ2024CA025368

PATIENT
  Age: 43 Year
  Sex: Male

DRUGS (10)
  1. BENZTROPINE [Suspect]
     Active Substance: BENZTROPINE
     Indication: Bipolar disorder
     Route: 065
  2. BREXPIPRAZOLE [Suspect]
     Active Substance: BREXPIPRAZOLE
     Indication: Bipolar disorder
     Route: 065
  3. CLONAZEPAM [Suspect]
     Active Substance: CLONAZEPAM
     Indication: Bipolar disorder
     Route: 065
  4. KETAMINE [Suspect]
     Active Substance: KETAMINE
     Indication: Bipolar disorder
     Dosage: 0.5 MG/KG
     Route: 065
  5. KETAMINE [Suspect]
     Active Substance: KETAMINE
     Dosage: 0.5 MG/KG
     Route: 065
  6. KETAMINE [Suspect]
     Active Substance: KETAMINE
     Dosage: UNK
     Route: 041
  7. LEVOMILNACIPRAN [Suspect]
     Active Substance: LEVOMILNACIPRAN
     Indication: Bipolar disorder
     Route: 065
  8. QUETIAPINE FUMARATE [Suspect]
     Active Substance: QUETIAPINE FUMARATE
     Indication: Bipolar disorder
     Route: 065
  9. VORTIOXETINE [Suspect]
     Active Substance: VORTIOXETINE
     Indication: Bipolar disorder
     Route: 065
  10. ZOPICLONE [Suspect]
     Active Substance: ZOPICLONE
     Indication: Bipolar disorder
     Route: 065

REACTIONS (3)
  - Dissociation [Recovered/Resolved]
  - Off label use [Recovered/Resolved]
  - Drug ineffective [Recovered/Resolved]
